FAERS Safety Report 25451612 (Version 1)
Quarter: 2025Q2

REPORT INFORMATION
  Report Type: Spontaneous
  Country: EG (occurrence: EG)
  Receive Date: 20250618
  Receipt Date: 20250618
  Transmission Date: 20250717
  Serious: Yes (Death, Hospitalization)
  Sender: PFIZER
  Company Number: EG-PFIZER INC-PV202500072331

PATIENT
  Age: 91 Year
  Sex: Female

DRUGS (4)
  1. IBRANCE [Suspect]
     Active Substance: PALBOCICLIB
     Route: 048
     Dates: start: 2024
  2. LASIX [Concomitant]
     Active Substance: FUROSEMIDE
  3. CORDARONE [Concomitant]
     Active Substance: AMIODARONE HYDROCHLORIDE
  4. FASLODEX [Concomitant]
     Active Substance: FULVESTRANT

REACTIONS (4)
  - Pyrexia [Fatal]
  - Infection [Fatal]
  - Pulmonary oedema [Fatal]
  - Urinary retention [Fatal]
